FAERS Safety Report 13734243 (Version 1)
Quarter: 2017Q3

REPORT INFORMATION
  Report Type: Spontaneous
  Country: RO (occurrence: RO)
  Receive Date: 20170708
  Receipt Date: 20170708
  Transmission Date: 20171127
  Serious: Yes (Hospitalization)
  Sender: FDA-Public Use
  Company Number: RO-AMGEN-ROUSP2017102309

PATIENT
  Age: 71 Year
  Sex: Female

DRUGS (5)
  1. METHOTREXATE. [Concomitant]
     Active Substance: METHOTREXATE
     Dosage: 10 MG, WEEKLY
     Route: 030
     Dates: start: 20160101
  2. METHYLPREDNISOLONE. [Concomitant]
     Active Substance: METHYLPREDNISOLONE
     Dosage: 4 MG/DAY ALTERNATIVELY WITH 2 MG/DAY
     Route: 048
     Dates: start: 20040705
  3. ALFACALCIDOL [Concomitant]
     Active Substance: ALFACALCIDOL
     Dosage: 0.5 UG, 1X/DAY
     Route: 048
     Dates: start: 20080526
  4. ENBREL [Suspect]
     Active Substance: ETANERCEPT
     Indication: RHEUMATOID ARTHRITIS
     Dosage: 50 MG, WEEKLY
     Route: 058
     Dates: start: 20091110
  5. ACTONEL [Concomitant]
     Active Substance: RISEDRONATE SODIUM
     Dosage: 75 MG, 2 TABLETS/MONTH
     Route: 048
     Dates: start: 20161015

REACTIONS (1)
  - Secretion discharge [Recovered/Resolved]

NARRATIVE: CASE EVENT DATE: 20170612
